FAERS Safety Report 21356302 (Version 1)
Quarter: 2022Q3

REPORT INFORMATION
  Report Type: Spontaneous
  Country: US (occurrence: US)
  Receive Date: 20220920
  Receipt Date: 20220920
  Transmission Date: 20221026
  Serious: Yes (Hospitalization, Other)
  Sender: FDA-Public Use
  Company Number: US-ALXN-A202211149

PATIENT
  Sex: Female

DRUGS (1)
  1. SOLIRIS [Suspect]
     Active Substance: ECULIZUMAB
     Indication: Paroxysmal nocturnal haemoglobinuria
     Dosage: UNK
     Route: 065

REACTIONS (10)
  - Pulmonary embolism [Unknown]
  - Breakthrough haemolysis [Unknown]
  - Thrombosis [Unknown]
  - Deep vein thrombosis [Unknown]
  - Sepsis [Unknown]
  - Pneumonia [Unknown]
  - Haematocrit decreased [Unknown]
  - Suspected COVID-19 [Unknown]
  - Uterine leiomyoma [Unknown]
  - Infection [Unknown]
